FAERS Safety Report 19703975 (Version 1)
Quarter: 2021Q3

REPORT INFORMATION
  Report Type: Spontaneous
  Country: US (occurrence: US)
  Receive Date: 20210813
  Receipt Date: 20210813
  Transmission Date: 20211014
  Serious: Yes (Hospitalization)
  Sender: FDA-Public Use
  Company Number: None

PATIENT
  Sex: Male

DRUGS (16)
  1. MAVENCLAD [Suspect]
     Active Substance: CLADRIBINE
     Indication: MULTIPLE SCLEROSIS
     Route: 048
     Dates: start: 20200718
  2. TAMSULOSIN [Concomitant]
     Active Substance: TAMSULOSIN
  3. FEROSUL [Concomitant]
     Active Substance: FERROUS SULFATE
  4. METOPROLOL. [Concomitant]
     Active Substance: METOPROLOL
  5. MITIGARE [Concomitant]
     Active Substance: COLCHICINE
  6. ASPIRIN?81 [Concomitant]
  7. METFORMIN [Concomitant]
     Active Substance: METFORMIN HYDROCHLORIDE
  8. LISINOPRIL. [Concomitant]
     Active Substance: LISINOPRIL
  9. ALPRAZOLAM. [Concomitant]
     Active Substance: ALPRAZOLAM
  10. VITAMIN D [Concomitant]
     Active Substance: VITAMIN D NOS
  11. OMEPRAZOLE. [Concomitant]
     Active Substance: OMEPRAZOLE
  12. CLONIDINE. [Concomitant]
     Active Substance: CLONIDINE
  13. BACLOFEN. [Concomitant]
     Active Substance: BACLOFEN
  14. SERTRALINE [Concomitant]
     Active Substance: SERTRALINE HYDROCHLORIDE
  15. AMLODIPINE [Concomitant]
     Active Substance: AMLODIPINE BESYLATE
  16. METHENAM HIP [Concomitant]

REACTIONS (1)
  - Urinary tract infection [None]
